FAERS Safety Report 18670207 (Version 1)
Quarter: 2020Q4

REPORT INFORMATION
  Report Type: Spontaneous
  Country: DE (occurrence: DE)
  Receive Date: 20201228
  Receipt Date: 20201228
  Transmission Date: 20210114
  Serious: Yes (Other)
  Sender: FDA-Public Use
  Company Number: NVSC2020DE337421

PATIENT
  Age: 1 Day
  Sex: Female
  Weight: 2.61 kg

DRUGS (10)
  1. PREDNISOLONE. [Suspect]
     Active Substance: PREDNISOLONE
     Indication: FOETAL EXPOSURE DURING PREGNANCY
     Dosage: MATERNAL DOSE: 20 [MG/D ] (24 TO 40 GESTATIONAL WEEK)
     Route: 064
  2. THYRONAJOD [Concomitant]
     Active Substance: LEVOTHYROXINE SODIUM\POTASSIUM IODIDE
     Indication: FOETAL EXPOSURE DURING PREGNANCY
     Dosage: MATERNAL DOSE: 50 (?G/D) / 150 (?G/D) (0 TO 40 GESTATIONAL WEEK)
     Route: 064
     Dates: start: 20191004, end: 20200710
  3. HUMALOG [Concomitant]
     Active Substance: INSULIN LISPRO
     Indication: FOETAL EXPOSURE DURING PREGNANCY
     Dosage: MATERNAL DOSE: 30 [I.E./D (MAX., 3X10 I.E.) ] (24 TO 40 GESTATIONAL WEEK)
     Route: 064
  4. LOCACORTEN [Suspect]
     Active Substance: FLUMETHASONE PIVALATE
     Indication: FOETAL EXPOSURE DURING PREGNANCY
     Dosage: MATERNAL DOSE: 24 TO 40 GESTATIONAL WEEK
     Route: 064
  5. COSENTYX [Concomitant]
     Active Substance: SECUKINUMAB
     Indication: FOETAL EXPOSURE DURING PREGNANCY
     Dosage: MATERNAL DOSE: 300 MG, Q4W (300 [MG/D (ALLE 4 WOCHEN) ] (2 TO 2 GESTATIONAL WEEK))
     Route: 064
     Dates: start: 20191018, end: 20191018
  6. PROTAPHANE [Concomitant]
     Active Substance: INSULIN HUMAN
     Indication: FOETAL EXPOSURE DURING PREGNANCY
     Dosage: MATERNAL DOSE: 16 [I.E./D ] (24 TO 40 GESTATIONAL WEEK)
     Route: 064
  7. KARISON [Suspect]
     Active Substance: CLOBETASOL PROPIONATE
     Indication: FOETAL EXPOSURE DURING PREGNANCY
     Dosage: MATERNAL DOSE: 23.5 TO 26 GESTATIONAL WEEK
     Route: 064
  8. MOMEGALEN [Suspect]
     Active Substance: MOMETASONE FUROATE
     Indication: FOETAL EXPOSURE DURING PREGNANCY
     Dosage: MATERNAL DOSE: 23.2 TO 40 GESTATIONAL WEEK
     Route: 064
  9. PREDNITOP [PREDNICARBATE] [Suspect]
     Active Substance: PREDNICARBATE
     Indication: FOETAL EXPOSURE DURING PREGNANCY
     Dosage: MATERNAL DOSE: 19.4 TO 23.2 GESTATIONAL WEEK
     Route: 064
     Dates: start: 20200218, end: 20200315
  10. CICLOSPORIN [Suspect]
     Active Substance: CYCLOSPORINE
     Indication: FOETAL EXPOSURE DURING PREGNANCY
     Dosage: MATERNAL DOSE: 150 [MG/D ] 2 SEPARATED DOSES (28 TO 40 GESTATIONAL WEEK)
     Route: 064

REACTIONS (2)
  - Small for dates baby [Recovered/Resolved]
  - Foetal exposure during pregnancy [Unknown]

NARRATIVE: CASE EVENT DATE: 20200710
